FAERS Safety Report 7460767-5 (Version None)
Quarter: 2011Q2

REPORT INFORMATION
  Report Type: 
  Country: None (occurrence: None)
  Receive Date: 20110505
  Receipt Date: 20110425
  Transmission Date: 20111010
  Serious: Yes (Other)
  Sender: FDA-Public Use
  Company Number: PHHY2011JP10506

PATIENT
  Sex: Male

DRUGS (1)
  1. ZOMETA [Suspect]
     Indication: METASTASES TO BONE
     Dosage: UNK
     Route: 041
     Dates: start: 20100702, end: 20110117

REACTIONS (2)
  - OSTEONECROSIS OF JAW [None]
  - BONE DISORDER [None]
